FAERS Safety Report 23916598 (Version 2)
Quarter: 2024Q3

REPORT INFORMATION
  Report Type: Spontaneous
  Country: US (occurrence: US)
  Receive Date: 20240529
  Receipt Date: 20240808
  Transmission Date: 20241016
  Serious: No
  Sender: NOVARTIS
  Company Number: US-002147023-NVSC2024US113045

PATIENT
  Sex: Female

DRUGS (2)
  1. MEKINIST [Suspect]
     Active Substance: TRAMETINIB DIMETHYL SULFOXIDE
     Indication: Ovarian cancer
     Dosage: 2 MG, QD
     Route: 048
     Dates: start: 202403
  2. TAFINLAR [Concomitant]
     Active Substance: DABRAFENIB MESYLATE
     Indication: Product used for unknown indication
     Dosage: 50 MG, Q12H (2 CAPSULES EVERY 12 HOURS)
     Route: 065

REACTIONS (3)
  - Diarrhoea [Unknown]
  - Pyrexia [Unknown]
  - Blood glucose increased [Unknown]
